FAERS Safety Report 14416454 (Version 1)
Quarter: 2018Q1

REPORT INFORMATION
  Report Type: Report from Study
  Country: US (occurrence: US)
  Receive Date: 20180122
  Receipt Date: 20180122
  Transmission Date: 20180509
  Serious: Yes (Hospitalization, Other)
  Sender: FDA-Public Use
  Company Number: US-ROCHE-2060056

PATIENT

DRUGS (2)
  1. GANCICLOVIR. [Suspect]
     Active Substance: GANCICLOVIR
     Dosage: MAINTENANCE THERAPY
     Route: 042
  2. GANCICLOVIR. [Suspect]
     Active Substance: GANCICLOVIR
     Indication: CYTOMEGALOVIRUS CHORIORETINITIS
     Dosage: MINIMUM OF 21 DAYS DURING SHORT TERM INDUCTION THERAPY
     Route: 042

REACTIONS (11)
  - Blood alkaline phosphatase increased [Unknown]
  - Leukopenia [Unknown]
  - Pyrexia [Recovered/Resolved]
  - Staphylococcal sepsis [Unknown]
  - Malnutrition [Unknown]
  - Hallucination [Unknown]
  - Psychotic disorder [Unknown]
  - Delusion [Recovered/Resolved]
  - Urticaria [Unknown]
  - Psychotic disorder [Recovered/Resolved]
  - Hepatic enzyme increased [Unknown]
